FAERS Safety Report 9053967 (Version 1)
Quarter: 2013Q1

REPORT INFORMATION
  Report Type: Spontaneous
  Country: US (occurrence: None)
  Receive Date: 20130201
  Receipt Date: 20130201
  Transmission Date: 20140127
  Serious: Yes (Hospitalization)
  Sender: FDA-Public Use
  Company Number: None

PATIENT
  Age: 79 Year
  Sex: Male
  Weight: 88.1 kg

DRUGS (1)
  1. LOSARTAN [Suspect]
     Indication: HYPERTENSION
     Route: 048
     Dates: start: 20120327, end: 20120521

REACTIONS (5)
  - Abasia [None]
  - Dizziness [None]
  - Fall [None]
  - Contusion [None]
  - Chronic obstructive pulmonary disease [None]
